FAERS Safety Report 6550687-2 (Version None)
Quarter: 2010Q1

REPORT INFORMATION
  Report Type: 
  Country: None (occurrence: None)
  Receive Date: 20100125
  Receipt Date: 20091222
  Transmission Date: 20100710
  Serious: No
  Sender: FDA-Public Use
  Company Number: US-TYCO HEALTHCARE/MALLINCKRODT-T200902362

PATIENT
  Age: 25 Year
  Sex: Male

DRUGS (1)
  1. OPTIRAY 350 [Suspect]
     Dosage: UNK

REACTIONS (4)
  - HYPERSENSITIVITY [None]
  - NAUSEA [None]
  - THROAT IRRITATION [None]
  - VOMITING [None]
